FAERS Safety Report 11291609 (Version 1)
Quarter: 2015Q3

REPORT INFORMATION
  Report Type: Spontaneous
  Country: US (occurrence: US)
  Receive Date: 20150722
  Receipt Date: 20150722
  Transmission Date: 20151125
  Serious: No
  Sender: FDA-Public Use
  Company Number: US-PFIZER INC-2015238650

PATIENT
  Age: 67 Year
  Sex: Male
  Weight: 67.1 kg

DRUGS (3)
  1. AMLODIPINE [Concomitant]
     Active Substance: AMLODIPINE BESYLATE
  2. HYDROCODONE/APAP [Concomitant]
     Active Substance: ACETAMINOPHEN\HYDROCODONE BITARTRATE
  3. SUTENT [Suspect]
     Active Substance: SUNITINIB MALATE
     Dosage: 50 MG, CYCLIC (28 DAYS ON/14 DAYS OFF)
     Dates: start: 20150707

REACTIONS (10)
  - Fatigue [Unknown]
  - Headache [Unknown]
  - Oral disorder [Unknown]
  - Nausea [Unknown]
  - Pain [Unknown]
  - Dry skin [Unknown]
  - Blood pressure increased [Unknown]
  - Tooth disorder [Unknown]
  - Limb discomfort [Unknown]
  - Dizziness [Unknown]
